FAERS Safety Report 20749103 (Version 1)
Quarter: 2022Q2

REPORT INFORMATION
  Report Type: Spontaneous
  Country: US (occurrence: None)
  Receive Date: 20220425
  Receipt Date: 20220425
  Transmission Date: 20220720
  Serious: Yes (Hospitalization)
  Sender: FDA-Public Use
  Company Number: None

PATIENT
  Age: 67 Year
  Sex: Female

DRUGS (1)
  1. AMBRISENTAN [Suspect]
     Active Substance: AMBRISENTAN
     Indication: Pulmonary hypertension
     Dosage: FREQUENCY : DAILY;?
     Route: 048
     Dates: start: 20120727

REACTIONS (6)
  - Fall [None]
  - Facial bones fracture [None]
  - Subdural haematoma [None]
  - Wrist fracture [None]
  - Hypoxia [None]
  - Mental status changes [None]

NARRATIVE: CASE EVENT DATE: 20220313
